FAERS Safety Report 11969185 (Version 1)
Quarter: 2016Q1

REPORT INFORMATION
  Report Type: Report from Study
  Country: US (occurrence: US)
  Receive Date: 20160128
  Receipt Date: 20160128
  Transmission Date: 20160526
  Serious: No
  Sender: FDA-Public Use
  Company Number: PHEH2015US005223

PATIENT
  Sex: Female

DRUGS (1)
  1. TASIGNA [Suspect]
     Active Substance: NILOTINIB
     Indication: PRODUCT USED FOR UNKNOWN INDICATION
     Dosage: 300 MG, EVERY 12 HRS
     Route: 048

REACTIONS (6)
  - Nasopharyngitis [Unknown]
  - Dizziness [Unknown]
  - Headache [Unknown]
  - Cough [Unknown]
  - Rhinorrhoea [Unknown]
  - Throat irritation [Unknown]
